FAERS Safety Report 8756215 (Version 2)
Quarter: 2012Q4

REPORT INFORMATION
  Report Type: Spontaneous
  Country: US (occurrence: None)
  Receive Date: 20120816
  Receipt Date: 20120823
  Transmission Date: 20130627
  Serious: Yes (Hospitalization, Other)
  Sender: FDA-Public Use
  Company Number: 2012AP002371

PATIENT
  Age: 40 Year
  Sex: Female

DRUGS (8)
  1. LAMIVUDINE [Suspect]
     Indication: HIV INFECTION
  2. RALTEGRAVIR [Suspect]
     Indication: HIV INFECTION
  3. METOPROLOL [Concomitant]
  4. HYDROCHLOROTHIAZIDE [Concomitant]
  5. OMEPRAZOLE [Concomitant]
  6. INSULIN DETEMIR [Concomitant]
  7. PIOGLITAZONE [Concomitant]
  8. ZIDOVUDINE [Suspect]

REACTIONS (11)
  - Lactic acidosis [None]
  - Bronchitis [None]
  - Anuria [None]
  - Hypotension [None]
  - Renal failure acute [None]
  - Diarrhoea [None]
  - Vomiting [None]
  - Heart rate increased [None]
  - Mental status changes [None]
  - Respiratory disorder [None]
  - Continuous haemodiafiltration [None]
